FAERS Safety Report 9631890 (Version 1)
Quarter: 2013Q4

REPORT INFORMATION
  Report Type: Spontaneous
  Country: FR (occurrence: None)
  Receive Date: 20131015
  Receipt Date: 20131015
  Transmission Date: 20140711
  Serious: Yes (Life-Threatening, Hospitalization)
  Sender: FDA-Public Use
  Company Number: FR-20130391

PATIENT
  Age: 54 Year
  Sex: Male

DRUGS (4)
  1. DOTAREM (GADOTERIC ACID) [Suspect]
     Indication: NUCLEAR MAGNETIC RESONANCE IMAGING
     Dosage: (20 ML, 1 IN 1 D)
     Route: 042
     Dates: start: 20130809, end: 20130809
  2. DETENSIEL (BISOPROLOL) (BISOPROLOL) [Concomitant]
  3. XATRAL LP (ALFUZOSIN HYDROCHLORIDE) (ALFUZOSIN HYDROCHLORIDE) [Concomitant]
  4. XANAX  (ALPRAZOLAM) (ALPRAZOLAM) [Concomitant]

REACTIONS (7)
  - Anaphylactic shock [None]
  - Rash [None]
  - Lip oedema [None]
  - Tongue oedema [None]
  - Wheezing [None]
  - Coma [None]
  - Hypotension [None]
